FAERS Safety Report 8429627-7 (Version None)
Quarter: 2012Q2

REPORT INFORMATION
  Report Type: 
  Country: None (occurrence: None)
  Receive Date: 20120612
  Receipt Date: 20120529
  Transmission Date: 20120825
  Serious: Yes (Other)
  Sender: FDA-Public Use
  Company Number: BR-AMGEN-BRASP2012034895

PATIENT
  Age: 48 Year
  Sex: Male
  Weight: 84 kg

DRUGS (6)
  1. METHOTREXATE [Concomitant]
     Dosage: 20 MG, ONCE WEEKLY
  2. ENBREL [Suspect]
     Indication: RHEUMATOID ARTHRITIS
     Dosage: 50 MG, ONCE WEEKLY
     Route: 058
     Dates: start: 20120401
  3. ARAVA [Concomitant]
     Dosage: 20 MG, 1X/DAY
  4. PREDNISONE TAB [Concomitant]
     Dosage: 5 MG, 1X/DAY
  5. FOLIC ACID [Concomitant]
     Dosage: 5 MG, 1X/DAY
  6. IBUPROFEN [Concomitant]
     Dosage: 600 MG, 1X/DAY

REACTIONS (2)
  - CHEST PAIN [None]
  - DYSPNOEA [None]
